FAERS Safety Report 22630846 (Version 1)
Quarter: 2023Q2

REPORT INFORMATION
  Report Type: Spontaneous
  Country: US (occurrence: None)
  Receive Date: 20230622
  Receipt Date: 20230622
  Transmission Date: 20230722
  Serious: No
  Sender: FDA-Public Use
  Company Number: None

PATIENT

DRUGS (2)
  1. ADALAT [Suspect]
     Active Substance: NIFEDIPINE
     Route: 048
  2. PROCARDIA XL [Suspect]
     Active Substance: NIFEDIPINE
     Route: 048

REACTIONS (4)
  - Product packaging confusion [None]
  - Product use complaint [None]
  - Product selection error [None]
  - Product design issue [None]
